FAERS Safety Report 4891781-1 (Version None)
Quarter: 2005Q4

REPORT INFORMATION
  Report Type: 
  Country: None (occurrence: None)
  Receive Date: 20051220
  Receipt Date: 20051104
  Transmission Date: 20060501
  Serious: Yes (Other)
  Sender: FDA-Public Use
  Company Number: 423853

PATIENT
  Sex: Female

DRUGS (3)
  1. BONIVA [Suspect]
     Indication: DRUG USE FOR UNKNOWN INDICATION
     Dosage: ORAL
     Route: 048
     Dates: start: 20051103
  2. CALCIUM (CALCIUM) [Concomitant]
  3. CONCOMITANT DRUG (GENERIC UNKNOWN) [Concomitant]

REACTIONS (4)
  - DIARRHOEA [None]
  - HEADACHE [None]
  - INFLUENZA LIKE ILLNESS [None]
  - VOMITING IN PREGNANCY [None]
